FAERS Safety Report 5396556-5 (Version None)
Quarter: 2007Q3

REPORT INFORMATION
  Report Type: 
  Country: None (occurrence: None)
  Receive Date: 20070725
  Receipt Date: 20070719
  Transmission Date: 20080115
  Serious: Yes (Hospitalization)
  Sender: FDA-Public Use
  Company Number: FR-JNJFOC-20070703966

PATIENT
  Age: 82 Year
  Sex: Male

DRUGS (12)
  1. OFLOCET [Suspect]
     Indication: DRUG USE FOR UNKNOWN INDICATION
     Route: 042
  2. OFLOCET [Suspect]
     Indication: RENAL COLIC
     Route: 042
  3. NOROXIN [Suspect]
     Indication: RENAL COLIC
     Route: 048
  4. ROCEPHIN [Suspect]
     Indication: RENAL COLIC
     Route: 042
  5. OROKEN [Suspect]
     Indication: INFECTION
     Route: 048
  6. ORELOX [Suspect]
     Indication: INFECTION
     Route: 048
  7. HYZAAR [Concomitant]
     Indication: HYPERTENSION
     Route: 065
  8. CORDARONE [Concomitant]
     Indication: ATRIAL FIBRILLATION
     Route: 065
  9. ASPEGIC 325 [Concomitant]
     Route: 065
  10. AMLODIPINE [Concomitant]
     Indication: HYPERTENSION
     Route: 065
  11. SPASFON [Concomitant]
     Indication: RENAL COLIC
     Route: 065
  12. DOLIPRANE [Concomitant]
     Indication: RENAL COLIC
     Route: 065

REACTIONS (2)
  - BLOOD CREATININE INCREASED [None]
  - PSEUDOMEMBRANOUS COLITIS [None]
